FAERS Safety Report 6645079-1 (Version None)
Quarter: 2010Q1

REPORT INFORMATION
  Report Type: 
  Country: None (occurrence: None)
  Receive Date: 20100319
  Receipt Date: 20100319
  Transmission Date: 20100710
  Serious: Yes (Hospitalization)
  Sender: FDA-Public Use
  Company Number: None

PATIENT
  Sex: Female
  Weight: 78 kg

DRUGS (2)
  1. REGLAN [Suspect]
     Dosage: 10MG TID PO
     Route: 048
  2. PHENAZOPYRIDINE HCL TAB [Suspect]
     Dosage: 200MG TID PO
     Route: 048

REACTIONS (2)
  - ANAEMIA [None]
  - METHAEMOGLOBINAEMIA [None]
